FAERS Safety Report 19370849 (Version 1)
Quarter: 2021Q2

REPORT INFORMATION
  Report Type: Spontaneous
  Country: US (occurrence: US)
  Receive Date: 20210603
  Receipt Date: 20210603
  Transmission Date: 20210717
  Serious: Yes (Hospitalization, Other)
  Sender: FDA-Public Use
  Company Number: US-ELI_LILLY_AND_COMPANY-US202105011113

PATIENT
  Sex: Male

DRUGS (3)
  1. LANTUS [Concomitant]
     Active Substance: INSULIN GLARGINE
     Indication: DIABETES MELLITUS
  2. HUMULIN R [Suspect]
     Active Substance: INSULIN HUMAN
     Indication: DIABETES MELLITUS
     Dosage: 11 U, BID, BREAKFAST AND LUNCH
     Route: 058
     Dates: start: 2011
  3. HUMULIN R [Suspect]
     Active Substance: INSULIN HUMAN
     Dosage: 10 U, DAILY, TEATIME
     Route: 058

REACTIONS (3)
  - Blood glucose abnormal [Recovered/Resolved]
  - Accidental overdose [Recovered/Resolved]
  - Myocardial infarction [Recovered/Resolved]

NARRATIVE: CASE EVENT DATE: 2015
